FAERS Safety Report 8558342-4 (Version None)
Quarter: 2012Q3

REPORT INFORMATION
  Report Type: 
  Country: None (occurrence: None)
  Receive Date: 20120801
  Receipt Date: 20120724
  Transmission Date: 20120928
  Serious: Yes (Hospitalization)
  Sender: FDA-Public Use
  Company Number: US-ABBOTT-12P-163-0952360-00

PATIENT
  Sex: Female
  Weight: 85.352 kg

DRUGS (4)
  1. HUMIRA [Suspect]
     Indication: CROHN'S DISEASE
     Dates: start: 20110713
  2. MORPHINE SULFATE [Suspect]
     Indication: PAIN
     Dates: start: 20120601, end: 20120601
  3. SERTRALINE HYDROCHLORIDE [Concomitant]
     Indication: PRODUCT USED FOR UNKNOWN INDICATION
  4. ASACOL HD [Concomitant]
     Indication: PRODUCT USED FOR UNKNOWN INDICATION
     Dosage: DR

REACTIONS (7)
  - CROHN'S DISEASE [None]
  - PYREXIA [None]
  - HEART RATE DECREASED [None]
  - DIARRHOEA [None]
  - WEIGHT DECREASED [None]
  - INSOMNIA [None]
  - PAIN [None]
